FAERS Safety Report 19869485 (Version 1)
Quarter: 2021Q3

REPORT INFORMATION
  Report Type: Spontaneous
  Country: US (occurrence: US)
  Receive Date: 20210922
  Receipt Date: 20210922
  Transmission Date: 20211014
  Serious: Yes (Other)
  Sender: FDA-Public Use
  Company Number: US-ASTRAZENECA-2021A733175

PATIENT
  Sex: Female

DRUGS (5)
  1. BRILINTA [Suspect]
     Active Substance: TICAGRELOR
     Dosage: UNKNOWN
     Route: 048
  2. DOFETILIDE. [Suspect]
     Active Substance: DOFETILIDE
     Route: 048
  3. TIKOSYN [Suspect]
     Active Substance: DOFETILIDE
     Route: 065
  4. LISINOPRIL. [Suspect]
     Active Substance: LISINOPRIL
     Dosage: UNKNOWN
     Route: 048
  5. LEVOTHYROXINE SODIUM. [Suspect]
     Active Substance: LEVOTHYROXINE SODIUM
     Dosage: 1 TABLET MONDAY THROUGH SATURDAY AND NONE ON SUNDAY ORALLY IN THE MORNING ON AN EMPTY STOMACH
     Route: 048

REACTIONS (12)
  - Bundle branch block right [Unknown]
  - Pulmonary hypertension [Unknown]
  - Rash [Unknown]
  - Ejection fraction abnormal [Unknown]
  - Ventricular enlargement [Unknown]
  - Aortic valve incompetence [Unknown]
  - Ischaemic cardiomyopathy [Unknown]
  - Atrial fibrillation [Unknown]
  - Aortic valve stenosis [Unknown]
  - Ventricular fibrillation [Unknown]
  - Cough [Unknown]
  - Ventricular dysfunction [Unknown]
